FAERS Safety Report 7556180-2 (Version None)
Quarter: 2011Q2

REPORT INFORMATION
  Report Type: 
  Country: None (occurrence: None)
  Receive Date: 20110620
  Receipt Date: 20110610
  Transmission Date: 20111010
  Serious: Yes (Other)
  Sender: FDA-Public Use
  Company Number: US-BIOGENIDEC-2011BI021458

PATIENT
  Sex: Female

DRUGS (2)
  1. AVONEX [Suspect]
     Indication: MULTIPLE SCLEROSIS
     Route: 030
     Dates: start: 20080418, end: 20090418
  2. AVONEX [Suspect]
     Route: 030
     Dates: start: 19970119, end: 20020820

REACTIONS (7)
  - MULTIPLE SCLEROSIS [None]
  - SPINAL COLUMN STENOSIS [None]
  - STRESS [None]
  - SCOLIOSIS [None]
  - GRAND MAL CONVULSION [None]
  - SUPRAVENTRICULAR TACHYCARDIA [None]
  - DRUG HYPERSENSITIVITY [None]
